FAERS Safety Report 16826217 (Version 1)
Quarter: 2019Q4

REPORT INFORMATION
  Report Type: Spontaneous
  Country: US (occurrence: US)
  Receive Date: 20190918
  Receipt Date: 20190918
  Transmission Date: 20200122
  Serious: Yes (Other)
  Sender: FDA-Public Use
  Company Number: None

PATIENT
  Age: 57 Year
  Sex: Male
  Weight: 75.6 kg

DRUGS (1)
  1. SOFTSOAP ANTIBACTERIAL HAND [Suspect]
     Active Substance: TRICLOSAN
     Indication: ANTIBIOTIC PROPHYLAXIS
     Dosage: ?          OTHER STRENGTH:ONE SQUIRT;?
     Route: 061
     Dates: start: 20190901, end: 20190908

REACTIONS (2)
  - Erythema [None]
  - Pruritus [None]

NARRATIVE: CASE EVENT DATE: 20190914
